FAERS Safety Report 10220918 (Version 1)
Quarter: 2014Q2

REPORT INFORMATION
  Report Type: Spontaneous
  Country: US (occurrence: US)
  Receive Date: 20140606
  Receipt Date: 20140606
  Transmission Date: 20141212
  Serious: Yes (Hospitalization)
  Sender: FDA-Public Use
  Company Number: US-ELI_LILLY_AND_COMPANY-US201406000520

PATIENT
  Sex: Male

DRUGS (4)
  1. ZYPREXA [Suspect]
     Indication: PANIC ATTACK
     Dosage: 10MG, QD
     Route: 065
     Dates: start: 2010, end: 20140301
  2. ZYPREXA [Suspect]
     Dosage: 5MG, DAILY
  3. LITHIUM [Concomitant]
     Indication: PRODUCT USED FOR UNKNOWN INDICATION
  4. BENADRYL [Concomitant]
     Indication: PRODUCT USED FOR UNKNOWN INDICATION

REACTIONS (6)
  - Investigation [Unknown]
  - Eye pain [Unknown]
  - Photopsia [Unknown]
  - Eyelid irritation [Unknown]
  - Sluggishness [Unknown]
  - Off label use [Unknown]
